FAERS Safety Report 10572958 (Version 2)
Quarter: 2014Q4

REPORT INFORMATION
  Report Type: Spontaneous
  Country: US (occurrence: US)
  Receive Date: 20141110
  Receipt Date: 20141110
  Transmission Date: 20150529
  Serious: No
  Sender: FDA-Public Use
  Company Number: US-TEVA-451989USA

PATIENT
  Sex: Female

DRUGS (2)
  1. NUVARING [Concomitant]
     Active Substance: ETHINYL ESTRADIOL\ETONOGESTREL
  2. PHENTERMINE [Suspect]
     Active Substance: PHENTERMINE
     Dosage: 1/2 TAB

REACTIONS (2)
  - Product quality issue [Unknown]
  - Headache [Unknown]
